FAERS Safety Report 9396092 (Version 2)
Quarter: 2013Q3

REPORT INFORMATION
  Report Type: Spontaneous
  Country: US (occurrence: US)
  Receive Date: 20130711
  Receipt Date: 20130814
  Transmission Date: 20140515
  Serious: Yes (Hospitalization)
  Sender: FDA-Public Use
  Company Number: US-JNJFOC-20130700948

PATIENT
  Age: 68 Year
  Sex: Female
  Weight: 63.5 kg

DRUGS (4)
  1. TOPAMAX [Suspect]
     Indication: MIGRAINE PROPHYLAXIS
     Route: 048
     Dates: end: 201112
  2. TOPAMAX [Suspect]
     Indication: MIGRAINE PROPHYLAXIS
     Route: 048
     Dates: start: 201201
  3. TOPAMAX [Suspect]
     Indication: MIGRAINE PROPHYLAXIS
     Route: 048
     Dates: start: 201112
  4. CALAN SR [Suspect]
     Indication: MIGRAINE
     Route: 048

REACTIONS (7)
  - General physical condition abnormal [Unknown]
  - Disturbance in attention [Unknown]
  - Vertigo [Unknown]
  - Dizziness [Unknown]
  - Adverse event [Unknown]
  - Mental impairment [Unknown]
  - Drug ineffective [Unknown]
